FAERS Safety Report 15041799 (Version 4)
Quarter: 2019Q2

REPORT INFORMATION
  Report Type: Report from Study
  Country: DE (occurrence: DE)
  Receive Date: 20180621
  Receipt Date: 20190629
  Transmission Date: 20190711
  Serious: Yes (Death, Other)
  Sender: FDA-Public Use
  Company Number: DE-ROCHE-2142904

PATIENT
  Age: 71 Year
  Sex: Female
  Weight: 80 kg

DRUGS (5)
  1. PACLITAXEL. [Suspect]
     Active Substance: PACLITAXEL
     Route: 042
     Dates: start: 20150520
  2. CIPRO [Concomitant]
     Active Substance: CIPROFLOXACIN HYDROCHLORIDE
     Route: 065
     Dates: start: 20150513, end: 20150517
  3. PACLITAXEL. [Suspect]
     Active Substance: PACLITAXEL
     Route: 042
     Dates: start: 20150423, end: 20150423
  4. BEVACIZUMAB. [Suspect]
     Active Substance: BEVACIZUMAB
     Indication: BREAST CANCER
     Route: 042
     Dates: start: 20150121, end: 20150205
  5. PACLITAXEL. [Suspect]
     Active Substance: PACLITAXEL
     Indication: BREAST CANCER
     Route: 042
     Dates: start: 20150121, end: 20150121

REACTIONS (2)
  - Aplastic anaemia [Recovered/Resolved]
  - Death [Fatal]

NARRATIVE: CASE EVENT DATE: 20150423
